FAERS Safety Report 10055866 (Version 2)
Quarter: 2014Q2

REPORT INFORMATION
  Report Type: Spontaneous
  Country: CA (occurrence: CA)
  Receive Date: 20140403
  Receipt Date: 20140430
  Transmission Date: 20141212
  Serious: Yes (Death, Other)
  Sender: FDA-Public Use
  Company Number: CA-AMGEN-CANSP2014023381

PATIENT
  Age: 72 Year
  Sex: Female

DRUGS (6)
  1. ENBREL [Suspect]
     Indication: RHEUMATOID ARTHRITIS
     Dosage: 50 MG, QWK
     Route: 058
     Dates: start: 201310, end: 20140319
  2. HYDROXYCHLOROQUINE [Concomitant]
     Dosage: 200 MG, QD
     Route: 048
     Dates: end: 20140319
  3. ASPIRIN [Concomitant]
     Dosage: 81 MG, QD
     Route: 048
     Dates: end: 20140319
  4. ATENOL [Concomitant]
     Dosage: 25 MG, QD
     Route: 048
     Dates: end: 20140319
  5. LEVOTHYROXINE [Concomitant]
     Dosage: 0.05 MG, QD
     Route: 048
     Dates: end: 20140319
  6. ROSUVASTATIN [Concomitant]
     Dosage: 5 MG, QD
     Route: 048
     Dates: end: 20140319

REACTIONS (6)
  - Mycobacterium tuberculosis complex test positive [Unknown]
  - Cardio-respiratory arrest [Fatal]
  - Septic shock [Fatal]
  - Sepsis [Fatal]
  - Cardiac failure congestive [Unknown]
  - Inflammation [Unknown]
